FAERS Safety Report 9288051 (Version 1)
Quarter: 2013Q2

REPORT INFORMATION
  Report Type: Spontaneous
  Country: DK (occurrence: DK)
  Receive Date: 20130514
  Receipt Date: 20130514
  Transmission Date: 20140414
  Serious: Yes (Death, Life-Threatening, Hospitalization, Other)
  Sender: FDA-Public Use
  Company Number: DK-ROXANE LABORATORIES, INC.-2013-RO-00733RO

PATIENT
  Age: 22 Year
  Sex: Male

DRUGS (1)
  1. AZATHIOPRINE [Suspect]
     Indication: COLITIS ULCERATIVE

REACTIONS (8)
  - Histiocytosis haematophagic [Fatal]
  - Acute respiratory distress syndrome [Unknown]
  - Disseminated intravascular coagulation [Unknown]
  - Infectious mononucleosis [Unknown]
  - Epstein-Barr virus infection [Unknown]
  - Necrosis [Unknown]
  - Pneumomediastinum [Unknown]
  - Pneumopericardium [Unknown]
